FAERS Safety Report 22121603 (Version 1)
Quarter: 2023Q1

REPORT INFORMATION
  Report Type: Spontaneous
  Country: ES (occurrence: ES)
  Receive Date: 20230321
  Receipt Date: 20230321
  Transmission Date: 20230417
  Serious: Yes (Other)
  Sender: FDA-Public Use
  Company Number: None

PATIENT
  Age: 21 Year
  Sex: Female

DRUGS (3)
  1. NAPROXEN SODIUM [Interacting]
     Active Substance: NAPROXEN SODIUM
     Indication: Chest pain
     Dosage: UNK UNK
     Route: 048
     Dates: start: 20230131, end: 20230131
  2. IBUPROFEN [Interacting]
     Active Substance: IBUPROFEN
     Indication: Chest pain
     Route: 048
     Dates: start: 20230131, end: 20230131
  3. ACETAMINOPHEN [Suspect]
     Active Substance: ACETAMINOPHEN
     Indication: Chest pain
     Dosage: 10 G, ONCE
     Route: 048
     Dates: start: 20230131, end: 20230131

REACTIONS (2)
  - Hypertransaminasaemia [Recovering/Resolving]
  - Intentional overdose [Recovered/Resolved]

NARRATIVE: CASE EVENT DATE: 20230131
